FAERS Safety Report 6033329-4 (Version None)
Quarter: 2009Q1

REPORT INFORMATION
  Report Type: 
  Country: None (occurrence: None)
  Receive Date: 20090109
  Receipt Date: 20090105
  Transmission Date: 20090719
  Serious: Yes (Other)
  Sender: FDA-Public Use
  Company Number: US-ABBOTT-09P-163-0496412-00

PATIENT
  Sex: Female
  Weight: 81.72 kg

DRUGS (6)
  1. SYNTHROID [Suspect]
     Indication: HYPOTHYROIDISM
     Dates: start: 20040101, end: 20060901
  2. SYNTHROID [Suspect]
     Dates: start: 20030101, end: 20040101
  3. METFORMIN HCL [Concomitant]
     Indication: BLOOD TESTOSTERONE INCREASED
     Route: 048
  4. LEVOXYL [Concomitant]
     Indication: HYPOTHYROIDISM
     Dosage: 125MCG X 2 DAYS THEN 62.5MCG X 5 DAYS
     Route: 048
     Dates: start: 20060901
  5. CYTOMEL [Concomitant]
     Indication: TRI-IODOTHYRONINE
     Route: 048
  6. ASPIRIN [Concomitant]
     Indication: ANTIBODY TEST ABNORMAL
     Route: 048

REACTIONS (1)
  - ABORTION SPONTANEOUS [None]
